FAERS Safety Report 9647443 (Version 3)
Quarter: 2014Q1

REPORT INFORMATION
  Report Type: Spontaneous
  Country: US (occurrence: US)
  Receive Date: 20131028
  Receipt Date: 20140113
  Transmission Date: 20141002
  Serious: Yes (Hospitalization)
  Sender: FDA-Public Use
  Company Number: US-BIOGENIDEC-2013BI101617

PATIENT
  Age: 70 Year
  Sex: Female

DRUGS (1)
  1. AVONEX [Suspect]
     Indication: MULTIPLE SCLEROSIS
     Route: 030
     Dates: start: 20030131

REACTIONS (20)
  - Cardiac perforation [Not Recovered/Not Resolved]
  - Post procedural stroke [Recovered/Resolved]
  - Gastrointestinal haemorrhage [Recovered/Resolved]
  - Post procedural pneumonia [Recovered/Resolved]
  - Cardiac valve disease [Not Recovered/Not Resolved]
  - Cardiac procedure complication [Not Recovered/Not Resolved]
  - Pulmonary arterial hypertension [Unknown]
  - Cardiac failure congestive [Not Recovered/Not Resolved]
  - Treatment failure [Not Recovered/Not Resolved]
  - Surgical failure [Not Recovered/Not Resolved]
  - Multiple sclerosis [Not Recovered/Not Resolved]
  - Oxygen supplementation [Not Recovered/Not Resolved]
  - Hypoaesthesia oral [Not Recovered/Not Resolved]
  - Pharyngeal hypoaesthesia [Not Recovered/Not Resolved]
  - Hypoaesthesia [Not Recovered/Not Resolved]
  - Thermal burn [Unknown]
  - Hypoaesthesia teeth [Unknown]
  - Influenza like illness [Recovered/Resolved]
  - Multiple sclerosis relapse [Recovered/Resolved]
  - Drug ineffective [Not Recovered/Not Resolved]
